FAERS Safety Report 7078823-2 (Version None)
Quarter: 2010Q4

REPORT INFORMATION
  Report Type: 
  Country: None (occurrence: None)
  Receive Date: 20101102
  Receipt Date: 20101022
  Transmission Date: 20110411
  Serious: Yes (Other)
  Sender: FDA-Public Use
  Company Number: IT-JNJFOC-20101003312

PATIENT
  Age: 45 Year
  Sex: Male

DRUGS (2)
  1. INVEGA [Suspect]
     Indication: TOURETTE'S DISORDER
     Route: 048
  2. DEPAKENE [Suspect]
     Indication: ILL-DEFINED DISORDER

REACTIONS (2)
  - INTERSTITIAL LUNG DISEASE [None]
  - OFF LABEL USE [None]
